FAERS Safety Report 11594598 (Version 1)
Quarter: 2015Q4

REPORT INFORMATION
  Report Type: Spontaneous
  Country: NL (occurrence: NL)
  Receive Date: 20151005
  Receipt Date: 20151005
  Transmission Date: 20160304
  Serious: Yes (Other)
  Sender: FDA-Public Use
  Company Number: NL-BAUSCH-BL-2015-022652

PATIENT
  Age: 34 Year
  Sex: Male

DRUGS (2)
  1. TOBRAMYCIN. [Suspect]
     Active Substance: TOBRAMYCIN
     Dosage: 4 TIMES A DAY 80 MG
     Route: 048
  2. TOBRAMYCIN. [Suspect]
     Active Substance: TOBRAMYCIN
     Indication: PRODUCT USED FOR UNKNOWN INDICATION
     Dosage: 8 TIMES A DAY 80 MG
     Route: 048

REACTIONS (2)
  - Renal impairment [Recovered/Resolved]
  - Toxicity to various agents [Recovered/Resolved]
